FAERS Safety Report 14036652 (Version 2)
Quarter: 2017Q4

REPORT INFORMATION
  Report Type: Spontaneous
  Country: US (occurrence: US)
  Receive Date: 20171003
  Receipt Date: 20171016
  Transmission Date: 20180321
  Serious: Yes (Other)
  Sender: FDA-Public Use
  Company Number: US-BIOMARINAP-US-2017-115589

PATIENT
  Sex: Female
  Weight: 57 kg

DRUGS (1)
  1. NAGLAZYME [Suspect]
     Active Substance: GALSULFASE
     Indication: MUCOPOLYSACCHARIDOSIS
     Dosage: 53 MG, QW
     Route: 042
     Dates: start: 20130814

REACTIONS (8)
  - Cough [Unknown]
  - Upper respiratory tract infection [Unknown]
  - Dysuria [Unknown]
  - Malaise [Unknown]
  - Headache [Unknown]
  - Sinus congestion [Unknown]
  - Fatigue [Unknown]
  - Oropharyngeal pain [Unknown]
